FAERS Safety Report 9785749 (Version 1)
Quarter: 2013Q4

REPORT INFORMATION
  Report Type: Spontaneous
  Country: UA (occurrence: UA)
  Receive Date: 20131227
  Receipt Date: 20131227
  Transmission Date: 20140711
  Serious: Yes (Other)
  Sender: FDA-Public Use
  Company Number: UA-SA-2013SA134139

PATIENT
  Age: 57 Year
  Sex: Male

DRUGS (1)
  1. PLAVIX [Suspect]
     Indication: THROMBOSIS PROPHYLAXIS
     Route: 048
     Dates: start: 201311, end: 201311

REACTIONS (2)
  - Thrombosis in device [Unknown]
  - Chest pain [Unknown]
